FAERS Safety Report 8837114 (Version 1)
Quarter: 2012Q4

REPORT INFORMATION
  Report Type: 
  Country: US (occurrence: US)
  Receive Date: 20121012
  Receipt Date: 20121012
  Transmission Date: 20130627
  Serious: No
  Sender: FDA-Public Use
  Company Number: US-009507513-1209USA011179

PATIENT
  Sex: Male

DRUGS (1)
  1. NASONEX [Suspect]
     Dosage: UNK
     Route: 045

REACTIONS (1)
  - Hyposmia [Unknown]
